FAERS Safety Report 10502710 (Version 3)
Quarter: 2015Q1

REPORT INFORMATION
  Report Type: Spontaneous
  Country: US (occurrence: US)
  Receive Date: 20141007
  Receipt Date: 20150116
  Transmission Date: 20150720
  Serious: Yes (Other)
  Sender: FDA-Public Use
  Company Number: US-BAYER-2014-146217

PATIENT
  Age: 28 Year
  Sex: Female
  Weight: 68.48 kg

DRUGS (2)
  1. MIRENA [Suspect]
     Active Substance: LEVONORGESTREL
     Indication: CONTRACEPTION
     Dosage: 20 MCG/24HR, CONT
     Route: 015
     Dates: start: 20100401, end: 20140924
  2. MIRENA [Suspect]
     Active Substance: LEVONORGESTREL
     Indication: CONTRACEPTION
     Dosage: 20 MCG/24HR, CONT
     Route: 015
     Dates: start: 20140924, end: 20140924

REACTIONS (9)
  - Coital bleeding [None]
  - Embedded device [None]
  - Device physical property issue [None]
  - Device breakage [None]
  - Abdominal pain lower [Recovered/Resolved]
  - Device difficult to use [Recovered/Resolved]
  - Genital haemorrhage [Recovered/Resolved]
  - Dyspareunia [None]
  - Device expulsion [None]

NARRATIVE: CASE EVENT DATE: 20140924
